FAERS Safety Report 7645729-7 (Version None)
Quarter: 2011Q3

REPORT INFORMATION
  Report Type: 
  Country: None (occurrence: None)
  Receive Date: 20110729
  Receipt Date: 20110728
  Transmission Date: 20111222
  Serious: Yes (Death, Hospitalization)
  Sender: FDA-Public Use
  Company Number: BE-AMGEN-BELCT2011017591

PATIENT
  Age: 80 Year
  Sex: Male

DRUGS (1)
  1. ROMIPLOSTIM [Suspect]
     Indication: MYELODYSPLASTIC SYNDROME
     Dosage: 750 A?G, QWK
     Route: 058
     Dates: start: 20100316, end: 20110201

REACTIONS (3)
  - CARDIAC FAILURE [None]
  - PNEUMONIA [None]
  - ASPERGILLOSIS [None]
